FAERS Safety Report 23590409 (Version 2)
Quarter: 2024Q1

REPORT INFORMATION
  Report Type: Spontaneous
  Country: CA (occurrence: CA)
  Receive Date: 20240304
  Receipt Date: 20240315
  Transmission Date: 20240410
  Serious: Yes (Death, Hospitalization, Other)
  Sender: FDA-Public Use
  Company Number: CA-GLAXOSMITHKLINE-CA2024AMR025466

PATIENT

DRUGS (37)
  1. EPOPROSTENOL SODIUM [Suspect]
     Active Substance: EPOPROSTENOL SODIUM
     Indication: Pulmonary arterial hypertension
     Dosage: UNK, 1 EVERY 1 MINUTES
     Route: 042
  2. EPOPROSTENOL SODIUM [Suspect]
     Active Substance: EPOPROSTENOL SODIUM
     Dosage: UNK
     Route: 042
  3. ADCIRCA [Suspect]
     Active Substance: TADALAFIL
     Indication: Pulmonary arterial hypertension
     Dosage: 40 MG
     Route: 048
  4. MACITENTAN [Suspect]
     Active Substance: MACITENTAN
     Indication: Pulmonary arterial hypertension
     Dosage: 10 MG, QD
     Route: 048
  5. SELEXIPAG [Suspect]
     Active Substance: SELEXIPAG
     Indication: Pulmonary arterial hypertension
     Dosage: 800 UG
     Route: 048
  6. SELEXIPAG [Suspect]
     Active Substance: SELEXIPAG
     Dosage: 24000 MG
     Route: 048
  7. SELEXIPAG [Suspect]
     Active Substance: SELEXIPAG
     Dosage: 2000 MG
     Route: 048
  8. SELEXIPAG [Suspect]
     Active Substance: SELEXIPAG
     Dosage: 1200 MG
     Route: 048
  9. SELEXIPAG [Suspect]
     Active Substance: SELEXIPAG
     Dosage: 400 MG
     Route: 048
  10. SELEXIPAG [Suspect]
     Active Substance: SELEXIPAG
     Dosage: 2800 MG
     Route: 048
  11. SELEXIPAG [Suspect]
     Active Substance: SELEXIPAG
     Dosage: 1600 MG
     Route: 048
  12. SELEXIPAG [Suspect]
     Active Substance: SELEXIPAG
     Dosage: 3200 MG
     Route: 048
  13. ADEMPAS [Concomitant]
     Active Substance: RIOCIGUAT
     Indication: Pulmonary arterial hypertension
     Dosage: UNK
     Route: 048
  14. ADEMPAS [Concomitant]
     Active Substance: RIOCIGUAT
     Dosage: UNK
  15. NIFEDIPINE [Concomitant]
     Active Substance: NIFEDIPINE
     Indication: Raynaud^s phenomenon
     Dosage: UNK
     Route: 048
  16. TREPROSTINIL [Concomitant]
     Active Substance: TREPROSTINIL
     Indication: Pulmonary arterial hypertension
     Dosage: UNK, 1 EVERY 1 MINUTE
     Route: 048
  17. TREPROSTINIL [Concomitant]
     Active Substance: TREPROSTINIL
     Dosage: UNK
     Route: 048
  18. TREPROSTINIL [Concomitant]
     Active Substance: TREPROSTINIL
     Dosage: UNK, 245
     Route: 048
  19. TREPROSTINIL [Concomitant]
     Active Substance: TREPROSTINIL
     Dosage: UNK, 365
     Route: 048
  20. TREPROSTINIL [Concomitant]
     Active Substance: TREPROSTINIL
     Dosage: UNK, -59.0
     Route: 048
  21. TREPROSTINIL [Concomitant]
     Active Substance: TREPROSTINIL
     Dosage: UNK
     Route: 048
  22. ATORVASTATIN CALCIUM [Concomitant]
     Active Substance: ATORVASTATIN CALCIUM
     Indication: Blood cholesterol decreased
     Dosage: UNK
     Route: 048
  23. DARBEPOETIN ALFA [Concomitant]
     Active Substance: DARBEPOETIN ALFA
     Indication: Anaemia
     Dosage: UNK
     Route: 042
  24. EZETIMIBE [Concomitant]
     Active Substance: EZETIMIBE
     Indication: Blood cholesterol decreased
     Dosage: UNK
     Route: 048
  25. FUROSEMIDE [Concomitant]
     Active Substance: FUROSEMIDE
     Indication: Diuretic therapy
     Dosage: UNK
     Route: 048
  26. HYDROMORPHONE [Concomitant]
     Active Substance: HYDROMORPHONE
     Indication: Pain
     Dosage: UNK
     Route: 048
  27. LEVOTHYROXINE SODIUM [Concomitant]
     Active Substance: LEVOTHYROXINE SODIUM
     Indication: Hypothyroidism
     Dosage: UNK
     Route: 048
  28. POLYETHYLENE GLYCOLS [Concomitant]
     Active Substance: POLYETHYLENE GLYCOLS
     Indication: Constipation
     Dosage: UNK
     Route: 048
  29. MELATONIN [Concomitant]
     Active Substance: MELATONIN
     Indication: Sleep disorder
     Dosage: UNK
     Route: 048
  30. MOMETASONE FUROATE [Concomitant]
     Active Substance: MOMETASONE FUROATE
     Indication: Hypersensitivity
     Dosage: UNK
     Route: 055
  31. PANTOPRAZOLE [Concomitant]
     Active Substance: PANTOPRAZOLE
     Indication: Hyperchlorhydria
     Route: 048
  32. PROPYLENE GLYCOL [Concomitant]
     Active Substance: PROPYLENE GLYCOL
     Indication: Multiple allergies
     Dosage: UNK
     Route: 055
  33. QUETIAPINE FUMARATE [Concomitant]
     Active Substance: QUETIAPINE FUMARATE
     Indication: Affective disorder
     Dosage: UNK
  34. SERTRALINE HYDROCHLORIDE [Concomitant]
     Active Substance: SERTRALINE HYDROCHLORIDE
     Indication: Depression
     Route: 048
  35. FERRIC SODIUM GLUCONATE [Concomitant]
     Indication: Anaemia
     Route: 042
  36. VANCOMYCIN [Concomitant]
     Active Substance: VANCOMYCIN
     Indication: Infection
     Dosage: UNK
     Route: 048
  37. CHOLECALCIFEROL [Concomitant]
     Active Substance: CHOLECALCIFEROL
     Indication: Vitamin D
     Route: 048

REACTIONS (7)
  - Influenza like illness [Fatal]
  - Pulmonary arterial hypertension [Fatal]
  - COVID-19 pneumonia [Fatal]
  - Dyspnoea [Fatal]
  - Fall [Fatal]
  - Haemorrhage intracranial [Fatal]
  - Respiratory failure [Fatal]
